FAERS Safety Report 7579354-3 (Version None)
Quarter: 2011Q2

REPORT INFORMATION
  Report Type: 
  Country: None (occurrence: None)
  Receive Date: 20110628
  Receipt Date: 20110623
  Transmission Date: 20111010
  Serious: Yes (Hospitalization)
  Sender: FDA-Public Use
  Company Number: IT-BRISTOL-MYERS SQUIBB COMPANY-15851678

PATIENT
  Age: 84 Year
  Sex: Female

DRUGS (7)
  1. LANOXIN [Suspect]
     Indication: ATRIAL FIBRILLATION
     Dosage: 1DF:1 UNIT, 0.125MG TABS, INTERR ON 05JUN2011
     Route: 048
     Dates: start: 20070401
  2. GLIBOMET [Concomitant]
     Dosage: 1DF: 1UNIT 400MG+2.5MG FILM COATED TABS
  3. MONOKET [Concomitant]
     Dosage: 1DF: 1 UNIT; 40MG TABS
  4. LERCADIP [Concomitant]
     Dosage: 1DF: 1UNIT
  5. COUMADIN [Suspect]
     Indication: ATRIAL FIBRILLATION
     Dosage: 1DF: 1UNIT INTERRUPTED ON 05JUN2011
     Route: 048
     Dates: start: 20070401
  6. VASERETIC [Concomitant]
     Dosage: 1FD:1 UNIT
  7. CARVEDILOL [Concomitant]
     Dosage: 1DF: 6.25MG, 3.12MG TABS

REACTIONS (2)
  - TOXICITY TO VARIOUS AGENTS [None]
  - INTERNATIONAL NORMALISED RATIO INCREASED [None]
